FAERS Safety Report 7762835-7 (Version None)
Quarter: 2011Q3

REPORT INFORMATION
  Report Type: 
  Country: None (occurrence: None)
  Receive Date: 20110920
  Receipt Date: 20110914
  Transmission Date: 20111222
  Serious: Yes (Hospitalization)
  Sender: FDA-Public Use
  Company Number: FR-MERCK-1109USA01690

PATIENT
  Age: 68 Year
  Sex: Male

DRUGS (16)
  1. FORLAX [Concomitant]
     Route: 048
  2. LASIX [Concomitant]
     Route: 048
  3. FERROUS SULFATE TAB [Concomitant]
     Route: 065
  4. POTASSIUM CHLORIDE [Concomitant]
     Route: 048
  5. RABEPRAZOLE SODIUM [Concomitant]
     Route: 048
  6. CLOPIDOGREL BISULFATE [Concomitant]
     Route: 065
  7. CORDARONE [Concomitant]
     Route: 065
  8. ORBENIN CAP [Concomitant]
     Route: 048
  9. DAFALGAN CODEINE [Suspect]
     Route: 048
     Dates: end: 20110708
  10. CALCIDOSE VITAMINE D [Concomitant]
     Route: 065
  11. CLINDAMYCIN HCL [Concomitant]
     Route: 048
  12. ZETIA [Suspect]
     Route: 048
     Dates: end: 20110708
  13. ARANESP [Concomitant]
     Route: 065
  14. ATARAX [Concomitant]
     Route: 065
  15. FOLIC ACID [Concomitant]
     Route: 065
  16. FUCIDINE CAP [Suspect]
     Route: 048
     Dates: start: 20110629, end: 20110708

REACTIONS (2)
  - JAUNDICE [None]
  - HYPERBILIRUBINAEMIA [None]
